FAERS Safety Report 20779007 (Version 7)
Quarter: 2023Q1

REPORT INFORMATION
  Report Type: Report from Study
  Country: CN (occurrence: CN)
  Receive Date: 20220503
  Receipt Date: 20230314
  Transmission Date: 20230418
  Serious: Yes (Hospitalization, Other)
  Sender: FDA-Public Use
  Company Number: CN-PFIZER INC-202200627056

PATIENT
  Age: 25 Year
  Sex: Female
  Weight: 71 kg

DRUGS (4)
  1. REVATIO [Suspect]
     Active Substance: SILDENAFIL CITRATE
     Indication: Product used for unknown indication
     Dosage: 20 MG, 3X/DAY
     Route: 065
     Dates: start: 20220412
  2. AMBRISENTAN [Suspect]
     Active Substance: AMBRISENTAN
     Indication: Pulmonary arterial hypertension
     Dosage: UNK
     Route: 048
     Dates: start: 20210907, end: 20220412
  3. AMINOPYRINE AND CAFFEINE [Concomitant]
     Indication: Pyrexia
     Dosage: UNK
     Route: 048
     Dates: start: 20220413, end: 20220413
  4. AMINOPYRINE AND CAFFEINE [Concomitant]
     Dosage: UNK
     Route: 048
     Dates: start: 20220417, end: 20220417

REACTIONS (4)
  - Right ventricular failure [Recovered/Resolved]
  - Pneumonia [Unknown]
  - Chest discomfort [Recovered/Resolved]
  - Performance status decreased [Recovered/Resolved]

NARRATIVE: CASE EVENT DATE: 20220418
